FAERS Safety Report 8165307-3 (Version None)
Quarter: 2012Q1

REPORT INFORMATION
  Report Type: 
  Country: None (occurrence: None)
  Receive Date: 20120222
  Receipt Date: 20120222
  Transmission Date: 20120608
  Serious: Yes (Other)
  Sender: FDA-Public Use
  Company Number: None

PATIENT
  Age: 65 Year
  Sex: Male
  Weight: 119.5 kg

DRUGS (1)
  1. ENOXAPARIN [Suspect]
     Indication: DEEP VEIN THROMBOSIS
     Dosage: 120 MG BID SQ
     Route: 058
     Dates: start: 20120213, end: 20120216

REACTIONS (2)
  - THROMBOCYTOPENIA [None]
  - REFUSAL OF TREATMENT BY PATIENT [None]
